FAERS Safety Report 7930462-4 (Version None)
Quarter: 2011Q4

REPORT INFORMATION
  Report Type: 
  Country: None (occurrence: None)
  Receive Date: 20111121
  Receipt Date: 20111107
  Transmission Date: 20120403
  Serious: Yes (Hospitalization)
  Sender: FDA-Public Use
  Company Number: US-ROCHE-1012505

PATIENT
  Sex: Female

DRUGS (5)
  1. HERCEPTIN [Suspect]
     Dosage: OVER 30 MIN ON DAY 1, 8, 15, AND 22 STARTING ON WEEK 2
     Route: 042
  2. HERCEPTIN [Suspect]
     Indication: BREAST CANCER
     Dosage: OVER 90 MIN ON DAY 1, WEEK 1 ONLY
     Dates: start: 20051104
  3. HERCEPTIN [Suspect]
  4. CARBOPLATIN [Suspect]
     Indication: BREAST CANCER
     Dosage: AUC 2 OVER 1 HOUR ON DAYS 1, 8, AND 15
     Route: 042
  5. IXABEPILONE [Suspect]
     Indication: BREAST CANCER

REACTIONS (1)
  - OVARIAN CYST [None]
